FAERS Safety Report 9362080 (Version 2)
Quarter: 2013Q3

REPORT INFORMATION
  Report Type: Spontaneous
  Country: US (occurrence: US)
  Receive Date: 20130621
  Receipt Date: 20130709
  Transmission Date: 20140515
  Serious: Yes (Hospitalization, Other)
  Sender: FDA-Public Use
  Company Number: US-BAXTER-2013BAX022956

PATIENT
  Age: 60 Year
  Sex: Female

DRUGS (3)
  1. DIANEAL LOW CALCIUM [Suspect]
     Indication: PERITONEAL DIALYSIS
     Route: 033
     Dates: end: 20130601
  2. DIANEAL LOW CALCIUM [Suspect]
     Route: 033
     Dates: start: 20130605, end: 20130620
  3. DIANEAL LOW CALCIUM [Suspect]
     Route: 033
     Dates: start: 20130626

REACTIONS (7)
  - Gastritis [Recovering/Resolving]
  - Crohn^s disease [Recovering/Resolving]
  - Cystitis [Recovering/Resolving]
  - Enterococcal infection [Recovering/Resolving]
  - Nausea [Recovered/Resolved]
  - Vomiting [Recovered/Resolved]
  - Malaise [Recovering/Resolving]
